FAERS Safety Report 14482547 (Version 1)
Quarter: 2018Q1

REPORT INFORMATION
  Report Type: Report from Study
  Country: BR (occurrence: BR)
  Receive Date: 20180202
  Receipt Date: 20180202
  Transmission Date: 20180509
  Serious: Yes (Other)
  Sender: FDA-Public Use
  Company Number: PHHY2018BR015656

PATIENT
  Sex: Female
  Weight: 62 kg

DRUGS (2)
  1. ACLASTA [Suspect]
     Active Substance: ZOLEDRONIC ACID
     Indication: OSTEOPOROSIS
     Dosage: 1 DF (5MG/100ML), Q12MO
     Route: 042
     Dates: start: 2015
  2. ACLASTA [Suspect]
     Active Substance: ZOLEDRONIC ACID
     Dosage: 1 DF (5MG/100ML), Q12MO
     Route: 042

REACTIONS (15)
  - Spinal pain [Not Recovered/Not Resolved]
  - Cholelithiasis [Unknown]
  - Umbilical hernia [Unknown]
  - Exostosis [Unknown]
  - Spinal disorder [Unknown]
  - Syncope [Unknown]
  - Arthralgia [Recovering/Resolving]
  - Constipation [Unknown]
  - Back pain [Unknown]
  - Gait disturbance [Unknown]
  - Urinary tract infection [Not Recovered/Not Resolved]
  - Inguinal hernia [Unknown]
  - Accident [Unknown]
  - Body height decreased [Unknown]
  - Neuropathy peripheral [Unknown]
